FAERS Safety Report 15243662 (Version 1)
Quarter: 2018Q3

REPORT INFORMATION
  Report Type: Report from Study
  Country: None (occurrence: GB)
  Receive Date: 20180806
  Receipt Date: 20180806
  Transmission Date: 20181010
  Serious: Yes (Death, Hospitalization)
  Sender: FDA-Public Use
  Company Number: GB-ABBVIE-18K-167-2441853-00

PATIENT
  Age: 50 Year
  Sex: Male
  Weight: 76 kg

DRUGS (1)
  1. HUMIRA [Suspect]
     Active Substance: ADALIMUMAB
     Indication: PSORIATIC ARTHROPATHY
     Route: 058
     Dates: start: 20070304, end: 20180410

REACTIONS (6)
  - Skin infection [Fatal]
  - Hypoalbuminaemia [Fatal]
  - Septic shock [Fatal]
  - Multiple organ dysfunction syndrome [Fatal]
  - Urosepsis [Fatal]
  - Erythrodermic psoriasis [Fatal]

NARRATIVE: CASE EVENT DATE: 20180404
